FAERS Safety Report 10948853 (Version 6)
Quarter: 2016Q3

REPORT INFORMATION
  Report Type: Spontaneous
  Country: US (occurrence: US)
  Receive Date: 20150324
  Receipt Date: 20160825
  Transmission Date: 20161109
  Serious: No
  Sender: FDA-Public Use
  Company Number: US-PFIZER INC-2015099204

PATIENT
  Age: 59 Year
  Sex: Female

DRUGS (9)
  1. DILANTIN [Suspect]
     Active Substance: PHENYTOIN
     Indication: EPILEPSY
     Dosage: 100 MG, 3X/DAY
  2. DILANTIN [Suspect]
     Active Substance: PHENYTOIN
     Indication: SEIZURE
     Dosage: 100 MG, (3XS)
  3. VITAMIN D [Concomitant]
     Active Substance: CHOLECALCIFEROL
     Indication: EPILEPSY
     Dosage: UNK
     Dates: start: 2003
  4. OSTEO BI-FLEX [Concomitant]
     Active Substance: CHONDROITIN SULFATE A\GLUCOSAMINE
     Dosage: UNK
     Dates: start: 2005
  5. CALCIUM [Concomitant]
     Active Substance: CALCIUM
     Dosage: UNK
     Dates: start: 2003
  6. VITAMIN B12 [Concomitant]
     Active Substance: CYANOCOBALAMIN
     Dosage: UNK
     Dates: start: 2003
  7. FISH OIL [Concomitant]
     Active Substance: FISH OIL
     Indication: EPILEPSY
     Dosage: UNK
     Dates: start: 2003
  8. VITAMIN G [Concomitant]
     Dosage: UNK
  9. CALCIUM CITRATE + D [Concomitant]
     Dosage: UNK
     Dates: start: 2003

REACTIONS (2)
  - Headache [Recovered/Resolved]
  - Food craving [Recovered/Resolved]

NARRATIVE: CASE EVENT DATE: 2008
